FAERS Safety Report 12512914 (Version 1)
Quarter: 2016Q2

REPORT INFORMATION
  Report Type: Spontaneous
  Country: US (occurrence: None)
  Receive Date: 20160629
  Receipt Date: 20160629
  Transmission Date: 20160815
  Serious: Yes (Other)
  Sender: FDA-Public Use
  Company Number: None

PATIENT
  Age: 33 Year
  Sex: Female
  Weight: 56.7 kg

DRUGS (1)
  1. SUN BUM SUNSCREEN LIP BALM BROAD SPECTRUM SPF 30 PINK GRAPEFRUIT [Suspect]
     Active Substance: AVOBENZONE\HOMOSALATE\OCTINOXATE\OCTISALATE
     Indication: PROPHYLAXIS AGAINST SOLAR RADIATION
     Dosage: APPLIED TO A SURFACE, USUALLY THE SKIN
     Dates: start: 20160626, end: 20160626

REACTIONS (5)
  - Cheilitis [None]
  - Paraesthesia oral [None]
  - Lip exfoliation [None]
  - Lip blister [None]
  - Lip swelling [None]

NARRATIVE: CASE EVENT DATE: 20160626
